FAERS Safety Report 19625472 (Version 2)
Quarter: 2022Q4

REPORT INFORMATION
  Report Type: Spontaneous
  Country: CA (occurrence: CA)
  Receive Date: 20210729
  Receipt Date: 20221209
  Transmission Date: 20230113
  Serious: Yes (Other)
  Sender: FDA-Public Use
  Company Number: CA-SA-SAC20210726000390

PATIENT
  Age: 60 Year
  Sex: Female

DRUGS (8)
  1. HYDROXYCHLOROQUINE [Suspect]
     Active Substance: HYDROXYCHLOROQUINE
     Indication: Product used for unknown indication
     Dosage: UNK
  2. LEFLUNOMIDE [Suspect]
     Active Substance: LEFLUNOMIDE
     Indication: Product used for unknown indication
  3. METHOTREXATE [Suspect]
     Active Substance: METHOTREXATE
     Indication: Product used for unknown indication
     Dosage: 1 DF, QW
     Route: 048
  4. METHOTREXATE [Suspect]
     Active Substance: METHOTREXATE
     Dosage: 10 MG, QW
     Route: 048
  5. SULFASALAZINE [Suspect]
     Active Substance: SULFASALAZINE
     Indication: Product used for unknown indication
     Dosage: UNK
  6. ACETAMINOPHEN\CODEINE PHOSPHATE [Suspect]
     Active Substance: ACETAMINOPHEN\CODEINE PHOSPHATE
     Indication: Product used for unknown indication
     Dosage: UNK UNK, BID
  7. ETANERCEPT [Suspect]
     Active Substance: ETANERCEPT
     Indication: Product used for unknown indication
     Dosage: 1 DF, QW
     Route: 058
  8. SECUKINUMAB [Suspect]
     Active Substance: SECUKINUMAB
     Indication: Product used for unknown indication
     Dosage: 300 MG
     Route: 058

REACTIONS (9)
  - Drug intolerance [Unknown]
  - Enthesopathy [Unknown]
  - Musculoskeletal stiffness [Unknown]
  - Psoriatic arthropathy [Unknown]
  - Respiratory failure [Unknown]
  - Rheumatoid arthritis [Unknown]
  - Diarrhoea [Unknown]
  - Nausea [Unknown]
  - Drug ineffective [Unknown]
